FAERS Safety Report 6773176-9 (Version None)
Quarter: 2010Q2

REPORT INFORMATION
  Report Type: 
  Country: None (occurrence: None)
  Receive Date: 20100520
  Receipt Date: 20090310
  Transmission Date: 20101027
  Serious: Yes (Other)
  Sender: FDA-Public Use
  Company Number: 2009181218

PATIENT
  Age: 67 Year
  Sex: Female
  Weight: 90.7 kg

DRUGS (5)
  1. PROVERA [Suspect]
     Indication: HORMONE REPLACEMENT THERAPY
     Dates: start: 19880101, end: 19960101
  2. PROVERA [Suspect]
     Indication: HOT FLUSH
     Dates: start: 19880101, end: 19960101
  3. PREMARIN [Suspect]
     Indication: HORMONE REPLACEMENT THERAPY
     Dates: start: 19880101, end: 20020101
  4. PREMARIN [Suspect]
     Indication: HOT FLUSH
     Dates: start: 19880101, end: 20020101
  5. HYZAAR [Concomitant]

REACTIONS (1)
  - BREAST CANCER [None]
